FAERS Safety Report 19818386 (Version 3)
Quarter: 2021Q4

REPORT INFORMATION
  Report Type: Spontaneous
  Country: US (occurrence: US)
  Receive Date: 20210911
  Receipt Date: 20211116
  Transmission Date: 20220304
  Serious: Yes (Other)
  Sender: FDA-Public Use
  Company Number: US-AMGEN-USASP2021138299

PATIENT
  Age: 67 Year
  Sex: Female
  Weight: 92.063 kg

DRUGS (1)
  1. REPATHA [Suspect]
     Active Substance: EVOLOCUMAB
     Indication: Hypercholesterolaemia
     Dosage: 420 MILLIGRAM
     Route: 065
     Dates: start: 2019

REACTIONS (4)
  - Knee operation [Unknown]
  - Decreased appetite [Recovered/Resolved]
  - Weight decreased [Recovering/Resolving]
  - Procedural pain [Unknown]

NARRATIVE: CASE EVENT DATE: 20200616
